FAERS Safety Report 13441682 (Version 1)
Quarter: 2017Q2

REPORT INFORMATION
  Report Type: Spontaneous
  Country: US (occurrence: US)
  Receive Date: 20170414
  Receipt Date: 20170414
  Transmission Date: 20170830
  Serious: Yes (Hospitalization)
  Sender: FDA-Public Use
  Company Number: US-JNJFOC-200208-1162

PATIENT
  Age: 13 Month
  Sex: Male
  Weight: 10 kg

DRUGS (2)
  1. BENADRYL [Suspect]
     Active Substance: DIPHENHYDRAMINE HYDROCHLORIDE
     Indication: PRODUCT USED FOR UNKNOWN INDICATION
     Dosage: DAILY DOSE TEXT: 100 - 150 MG ONCE
     Route: 048
  2. BENADRYL [Suspect]
     Active Substance: DIPHENHYDRAMINE HYDROCHLORIDE
     Route: 048

REACTIONS (14)
  - Overdose [Unknown]
  - Tremor [Recovered/Resolved]
  - Feeling jittery [Unknown]
  - Alanine aminotransferase increased [Recovered/Resolved]
  - Seizure [Recovered/Resolved]
  - Upper respiratory tract infection [Unknown]
  - Bundle branch block left [Recovered/Resolved]
  - Ventricular tachycardia [Recovered/Resolved]
  - Aspartate aminotransferase increased [Recovered/Resolved]
  - Blood lactate dehydrogenase increased [Recovered/Resolved]
  - Pyrexia [Recovered/Resolved]
  - Mydriasis [Recovered/Resolved]
  - Blood creatine phosphokinase increased [Recovered/Resolved]
  - Respiratory arrest [Recovered/Resolved]
